FAERS Safety Report 8887010 (Version 1)
Quarter: 2012Q4

REPORT INFORMATION
  Report Type: 
  Country: VE (occurrence: VE)
  Receive Date: 20121105
  Receipt Date: 20121105
  Transmission Date: 20130627
  Serious: Yes (Death, Hospitalization)
  Sender: FDA-Public Use
  Company Number: VE-BRISTOL-MYERS SQUIBB COMPANY-17002445

PATIENT
  Age: 48 Year
  Sex: Female

DRUGS (1)
  1. SPRYCEL [Suspect]
     Indication: ACUTE LYMPHOCYTIC LEUKAEMIA
     Dosage: 19Oct12
     Dates: start: 20121016

REACTIONS (4)
  - Death [Fatal]
  - Ischaemia [Unknown]
  - Coma [Unknown]
  - Thrombosis [Unknown]
